FAERS Safety Report 6811280-7 (Version None)
Quarter: 2010Q2

REPORT INFORMATION
  Report Type: 
  Country: None (occurrence: None)
  Receive Date: 20100629
  Receipt Date: 20100629
  Transmission Date: 20101027
  Serious: Yes (Hospitalization)
  Sender: FDA-Public Use
  Company Number: None

PATIENT
  Age: 33 Year
  Sex: Female
  Weight: 52.1637 kg

DRUGS (1)
  1. SCOPOLAMINE [Suspect]
     Indication: MOTION SICKNESS
     Dosage: RX'D BY ANOTHER MD
     Dates: start: 20100606, end: 20100607

REACTIONS (7)
  - AGITATION [None]
  - ANXIETY [None]
  - DIZZINESS [None]
  - NAUSEA [None]
  - RETCHING [None]
  - TACHYPHRENIA [None]
  - TREMOR [None]
